FAERS Safety Report 9287306 (Version 1)
Quarter: 2013Q2

REPORT INFORMATION
  Report Type: Spontaneous
  Country: CN (occurrence: CN)
  Receive Date: 20130513
  Receipt Date: 20130513
  Transmission Date: 20140414
  Serious: Yes (Hospitalization, Other)
  Sender: FDA-Public Use
  Company Number: CN-ABBOTT-13X-035-1088080-00

PATIENT
  Age: 6 Year
  Sex: Male

DRUGS (3)
  1. DEPAKINE [Suspect]
     Indication: EPILEPSY
     Route: 048
     Dates: start: 20120825, end: 20120827
  2. DEPAKINE [Suspect]
     Route: 048
     Dates: start: 20120828, end: 20120830
  3. DEPAKINE [Suspect]
     Route: 048
     Dates: start: 20120831, end: 20120907

REACTIONS (10)
  - Hypersomnia [Recovered/Resolved]
  - Encephalopathy [Recovering/Resolving]
  - Muscular weakness [Recovered/Resolved]
  - Speech disorder [Recovered/Resolved]
  - Eye disorder [Recovered/Resolved]
  - Depressed mood [Recovered/Resolved]
  - Vomiting [Recovered/Resolved]
  - Restlessness [Recovered/Resolved]
  - Crying [Recovered/Resolved]
  - Indifference [Recovered/Resolved]
